FAERS Safety Report 13305804 (Version 1)
Quarter: 2017Q1

REPORT INFORMATION
  Report Type: Spontaneous
  Country: US (occurrence: US)
  Receive Date: 20170308
  Receipt Date: 20170308
  Transmission Date: 20170428
  Serious: Yes (Death, Hospitalization)
  Sender: FDA-Public Use
  Company Number: None

PATIENT
  Age: 78 Year
  Sex: Female
  Weight: 122.5 kg

DRUGS (1)
  1. MEMANTINE HYDROCHLORIDE. [Suspect]
     Active Substance: MEMANTINE HYDROCHLORIDE
     Dates: end: 20161026

REACTIONS (7)
  - Pleural effusion [None]
  - Cough [None]
  - Dyspnoea [None]
  - Dysarthria [None]
  - Somnolence [None]
  - Asthenia [None]
  - Lung consolidation [None]
